FAERS Safety Report 7522901-8 (Version None)
Quarter: 2011Q2

REPORT INFORMATION
  Report Type: 
  Country: None (occurrence: None)
  Receive Date: 20110603
  Receipt Date: 20100507
  Transmission Date: 20111010
  Serious: No
  Sender: FDA-Public Use
  Company Number: US-BAYER-201022074NA

PATIENT
  Sex: Male

DRUGS (1)
  1. AVELOX [Suspect]
     Indication: SINUSITIS BACTERIAL
     Dosage: 400 MG, UNK
     Route: 048

REACTIONS (8)
  - ERYTHEMA [None]
  - URTICARIA [None]
  - EYE PRURITUS [None]
  - OCULAR HYPERAEMIA [None]
  - HYPERSENSITIVITY [None]
  - LIP SWELLING [None]
  - EYE SWELLING [None]
  - SWOLLEN TONGUE [None]
